FAERS Safety Report 7852509-6 (Version None)
Quarter: 2011Q3

REPORT INFORMATION
  Report Type: 
  Country: None (occurrence: None)
  Receive Date: 20110906
  Receipt Date: 20110524
  Transmission Date: 20111222
  Serious: No
  Sender: FDA-Public Use
  Company Number: 201105039

PATIENT
  Age: 70 Year
  Sex: Male

DRUGS (9)
  1. SIMVASTATIN [Concomitant]
  2. ATENOLOL [Concomitant]
  3. GLIPIZIDE [Concomitant]
  4. METFORMIN HCL [Concomitant]
  5. INSULIN LANTUS (INSULIN GLARGINE) [Concomitant]
  6. ASPIRIN [Concomitant]
  7. XIAFLEX [Suspect]
     Indication: DUPUYTREN'S CONTRACTURE
     Dosage: 1 IN 1 D, INTRALESIONAL
     Route: 026
     Dates: start: 20110510, end: 20110510
  8. VIAGRA [Concomitant]
  9. LISINOPRIL [Concomitant]

REACTIONS (1)
  - LACERATION [None]
